FAERS Safety Report 23262810 (Version 1)
Quarter: 2023Q4

REPORT INFORMATION
  Report Type: Spontaneous
  Country: CA (occurrence: None)
  Receive Date: 20231204
  Receipt Date: 20231204
  Transmission Date: 20240110
  Serious: Yes (Life-Threatening)
  Sender: FDA-Public Use
  Company Number: None

PATIENT
  Age: 9 Year
  Sex: Male

DRUGS (4)
  1. SINGULAIR [Suspect]
     Active Substance: MONTELUKAST SODIUM
     Indication: Rhinorrhoea
  2. PULMOZYME [Concomitant]
     Active Substance: DORNASE ALFA
  3. Pancreatic [Concomitant]
  4. ENZYMES [Concomitant]

REACTIONS (5)
  - Hostility [None]
  - Anger [None]
  - Suicidal ideation [None]
  - Crying [None]
  - Suicide attempt [None]

NARRATIVE: CASE EVENT DATE: 20201201
